FAERS Safety Report 5252734-7 (Version None)
Quarter: 2007Q1

REPORT INFORMATION
  Report Type: 
  Country: None (occurrence: None)
  Receive Date: 20070301
  Receipt Date: 20061120
  Transmission Date: 20070707
  Serious: No
  Sender: FDA-Public Use
  Company Number: US-GLAXOSMITHKLINE-A0628004A

PATIENT
  Age: 41 Year
  Sex: Female

DRUGS (4)
  1. LAMOTRIGINE [Suspect]
     Indication: BIPOLAR DISORDER
     Dosage: 200MG PER DAY
     Route: 048
  2. LEXAPRO [Suspect]
     Indication: BIPOLAR DISORDER
     Dosage: 20MG PER DAY
     Route: 048
     Dates: start: 20060401
  3. VISTARIL [Concomitant]
     Dosage: 100MG UNKNOWN
     Route: 048
  4. ABILIFY [Concomitant]
     Dosage: 15MG UNKNOWN
     Route: 048

REACTIONS (1)
  - ALOPECIA [None]
